FAERS Safety Report 9478354 (Version 2)
Quarter: 2013Q3

REPORT INFORMATION
  Report Type: Report from Study
  Country: US (occurrence: US)
  Receive Date: 20130827
  Receipt Date: 20130917
  Transmission Date: 20140515
  Serious: Yes (Hospitalization, Other)
  Sender: FDA-Public Use
  Company Number: US-JNJFOC-20130810460

PATIENT
  Age: 69 Year
  Sex: Male
  Weight: 107 kg

DRUGS (19)
  1. REMICADE [Suspect]
     Indication: RHEUMATOID ARTHRITIS
     Route: 042
     Dates: start: 201303, end: 201307
  2. ALLOPURINOL [Concomitant]
     Route: 065
  3. CLONAZEPAM [Concomitant]
     Route: 065
  4. CONCERTA [Concomitant]
     Route: 065
  5. COZAAR [Concomitant]
     Route: 065
  6. CYMBALTA [Concomitant]
     Route: 065
  7. FOLBEE [Concomitant]
     Route: 065
  8. JANUMET [Concomitant]
     Route: 065
  9. METHOTREXATE [Concomitant]
     Route: 065
  10. NIASPAN [Concomitant]
     Route: 065
  11. PLAQUENIL [Concomitant]
     Route: 065
  12. PRAVACHOL [Concomitant]
     Route: 065
  13. PROTONIX [Concomitant]
     Route: 065
  14. TESTOSTERONE [Concomitant]
     Route: 065
  15. ULTRAM [Concomitant]
     Route: 065
  16. VITAMIN B12 [Concomitant]
     Route: 030
  17. VITAMIN D3 [Concomitant]
     Route: 065
  18. PB8 [Concomitant]
     Route: 065
  19. PROTANDIM [Concomitant]
     Route: 065

REACTIONS (2)
  - Pneumonia [Recovering/Resolving]
  - Decreased immune responsiveness [Not Recovered/Not Resolved]
